FAERS Safety Report 4415588-4 (Version None)
Quarter: 2004Q2

REPORT INFORMATION
  Report Type: 
  Country: None (occurrence: None)
  Receive Date: 20040630
  Receipt Date: 20031221
  Transmission Date: 20050107
  Serious: Yes (Hospitalization)
  Sender: FDA-Public Use
  Company Number: 2003126068

PATIENT
  Age: 78 Year
  Sex: Female
  Weight: 68.9467 kg

DRUGS (4)
  1. ZOLOFT [Suspect]
     Indication: DEPRESSION
     Dosage: 25 MG DAILY ORAL
     Route: 048
     Dates: start: 20031101
  2. WARFARIN SODIUM [Concomitant]
  3. DIGOXIN [Concomitant]
  4. ATENOLOL [Concomitant]

REACTIONS (4)
  - CRYING [None]
  - DEPRESSION [None]
  - TREMOR [None]
  - WEIGHT DECREASED [None]
